FAERS Safety Report 14406291 (Version 1)
Quarter: 2018Q1

REPORT INFORMATION
  Report Type: Other
  Country: None (occurrence: US)
  Receive Date: 20180118
  Receipt Date: 20180118
  Transmission Date: 20180509
  Serious: Yes (Life-Threatening)
  Sender: FDA-Public Use
  Company Number: US-THE PROACTIV LLC-2040287

PATIENT
  Age: 14 Year
  Sex: Female

DRUGS (2)
  1. PROACTIV RENEWING CLEANSER [Suspect]
     Active Substance: BENZOYL PEROXIDE
     Indication: ACNE
     Route: 061
     Dates: start: 20170305, end: 20170307
  2. PROACTIV EMERGENCY BLEMISH RELIEF [Suspect]
     Active Substance: BENZOYL PEROXIDE
     Route: 061
     Dates: start: 20170305, end: 20170307

REACTIONS (5)
  - Erythema [Recovered/Resolved]
  - Dyspnoea [None]
  - Circulatory collapse [None]
  - Dyspnoea [Recovered/Resolved]
  - Respiratory arrest [Recovered/Resolved]

NARRATIVE: CASE EVENT DATE: 20170307
